FAERS Safety Report 16194810 (Version 2)
Quarter: 2019Q3

REPORT INFORMATION
  Report Type: Report from Study
  Country: None (occurrence: US)
  Receive Date: 20190414
  Receipt Date: 20190823
  Transmission Date: 20191004
  Serious: Yes (Hospitalization, Other)
  Sender: FDA-Public Use
  Company Number: US-ABBVIE-19K-163-2739243-00

PATIENT
  Sex: Male
  Weight: 72.19 kg

DRUGS (2)
  1. HUMIRA [Suspect]
     Active Substance: ADALIMUMAB
     Indication: PSORIASIS
     Route: 058
     Dates: start: 2016
  2. TORSEMIDE. [Concomitant]
     Active Substance: TORSEMIDE
     Indication: PRODUCT USED FOR UNKNOWN INDICATION

REACTIONS (6)
  - Pneumonia [Unknown]
  - Apparent death [Unknown]
  - Autoimmune disorder [Unknown]
  - Back disorder [Unknown]
  - Gastrointestinal haemorrhage [Unknown]
  - Staphylococcal sepsis [Unknown]
